FAERS Safety Report 7326067-9 (Version None)
Quarter: 2011Q1

REPORT INFORMATION
  Report Type: 
  Country: None (occurrence: None)
  Receive Date: 20110302
  Receipt Date: 20110224
  Transmission Date: 20110831
  Serious: Yes (Death)
  Sender: FDA-Public Use
  Company Number: DE-ROCHE-484077

PATIENT
  Sex: Male
  Weight: 87 kg

DRUGS (7)
  1. KALINOR RETARD [Concomitant]
     Dates: start: 20070206, end: 20110218
  2. FLUOROURACIL [Suspect]
     Dosage: DOSE REPORTED AS 630 MG ON DAYS ONE AND TWO.DOSAGE FORM : I
     Route: 040
     Dates: start: 20070122, end: 20070207
  3. OXALIPLATIN [Suspect]
     Dosage: DOSAGE FORM REPORTED AS INFUSION
     Route: 042
     Dates: start: 20070122, end: 20070218
  4. BEVACIZUMAB [Suspect]
     Dosage: DOSAGE FORM REPORTED AS INFUSION. FREQUENCY AS PER PROTOCOL.
     Route: 042
     Dates: start: 20070122, end: 20070218
  5. LOPEDIUM [Concomitant]
     Dates: start: 20070125, end: 20070218
  6. FLUOROURACIL [Suspect]
     Dosage: DOSE REPORTED AS 945 MG ON DAYS ONE AND TWO. DOSAGE FORM REPORTED AS PERMANENT INFUSION 2 DAYS
     Route: 042
     Dates: start: 20070122, end: 20070218
  7. CALCIUM FOLINATE [Suspect]
     Dosage: DOSE REPORTED AS 420 MG ON DAYS ONE AND TWO DOSAGE FORM REPORTED AS INFUSION
     Route: 042
     Dates: start: 20070122, end: 20070218

REACTIONS (1)
  - DEATH [None]
